FAERS Safety Report 7531099-1 (Version None)
Quarter: 2011Q2

REPORT INFORMATION
  Report Type: 
  Country: None (occurrence: None)
  Receive Date: 20110608
  Receipt Date: 20110525
  Transmission Date: 20111010
  Serious: Yes (Hospitalization)
  Sender: FDA-Public Use
  Company Number: CA-JNJFOC-20110512595

PATIENT
  Sex: Female
  Weight: 62 kg

DRUGS (6)
  1. REMICADE [Suspect]
     Indication: COLITIS ULCERATIVE
     Route: 042
     Dates: start: 20110217
  2. REMICADE [Suspect]
     Dosage: 2ND INFUSION ON UNSPECIFIED DATE
     Route: 042
  3. REMICADE [Suspect]
     Dosage: LAST LOADING DOSE
     Route: 042
     Dates: start: 20110328
  4. REMICADE [Suspect]
     Dosage: 4TH INFUSION
     Route: 042
     Dates: start: 20110525
  5. IMURAN [Concomitant]
     Route: 048
  6. ALESSE [Concomitant]

REACTIONS (1)
  - APPENDICITIS PERFORATED [None]
